FAERS Safety Report 9580124 (Version 2)
Quarter: 2013Q4

REPORT INFORMATION
  Report Type: Spontaneous
  Country: ES (occurrence: ES)
  Receive Date: 20131002
  Receipt Date: 20131008
  Transmission Date: 20140711
  Serious: Yes (Other)
  Sender: FDA-Public Use
  Company Number: ES-ABBVIE-13P-144-1153181-00

PATIENT
  Age: 48 Year
  Sex: Male

DRUGS (1)
  1. SECALIP [Suspect]
     Indication: HYPERTRIGLYCERIDAEMIA
     Dates: start: 201307, end: 201309

REACTIONS (2)
  - Intestinal haemorrhage [Unknown]
  - Rectal haemorrhage [Recovered/Resolved]
